FAERS Safety Report 7374710-0 (Version None)
Quarter: 2011Q1

REPORT INFORMATION
  Report Type: 
  Country: None (occurrence: None)
  Receive Date: 20110325
  Receipt Date: 20100823
  Transmission Date: 20110831
  Serious: No
  Sender: FDA-Public Use
  Company Number: US-MYLANLABS-2010S1015611

PATIENT
  Age: 47 Year
  Sex: Female
  Weight: 94.8 kg

DRUGS (5)
  1. KEPPRA [Concomitant]
     Indication: CONVULSION
  2. FENTANYL-100 [Suspect]
     Indication: BACK PAIN
     Dosage: CHANGED Q74H
     Route: 062
  3. OXYCONTIN [Concomitant]
     Indication: BREAKTHROUGH PAIN
  4. GABAPENTIN [Concomitant]
  5. ROXICODONE [Concomitant]

REACTIONS (6)
  - NAUSEA [None]
  - DYSPNOEA [None]
  - CHEST DISCOMFORT [None]
  - HYPERHIDROSIS [None]
  - CHILLS [None]
  - DRUG EFFECT INCREASED [None]
